FAERS Safety Report 9867652 (Version 1)
Quarter: 2014Q1

REPORT INFORMATION
  Report Type: Spontaneous
  Country: JP (occurrence: JP)
  Receive Date: 20140204
  Receipt Date: 20140204
  Transmission Date: 20141002
  Serious: Yes (Other)
  Sender: FDA-Public Use
  Company Number: JP-PFIZER INC-2014028058

PATIENT
  Age: 46 Year
  Sex: Male

DRUGS (3)
  1. OXALIPLATIN [Suspect]
     Indication: COLON CANCER METASTATIC
     Dosage: 10 CYCLES
     Dates: start: 200806, end: 200812
  2. FLUOROURACIL [Suspect]
     Indication: COLON CANCER METASTATIC
     Dosage: 10 CYCLES
     Dates: start: 200806, end: 200812
  3. LEUCOVORIN [Suspect]
     Indication: COLON CANCER METASTATIC
     Dosage: 10 CYCLES
     Dates: start: 200806, end: 200812

REACTIONS (6)
  - Portal hypertension [Unknown]
  - Venoocclusive liver disease [Unknown]
  - Varices oesophageal [Unknown]
  - Gastric varices [Unknown]
  - Thrombocytopenia [Unknown]
  - Splenomegaly [Unknown]
